FAERS Safety Report 8505096-3 (Version None)
Quarter: 2012Q3

REPORT INFORMATION
  Report Type: 
  Country: None (occurrence: None)
  Receive Date: 20120712
  Receipt Date: 20120703
  Transmission Date: 20120928
  Serious: Yes (Other)
  Sender: FDA-Public Use
  Company Number: CA-JNJFOC-20120701527

PATIENT
  Sex: Male
  Weight: 56.4 kg

DRUGS (15)
  1. REMICADE [Suspect]
     Dosage: 24TH INFUSION
     Route: 042
     Dates: start: 20120507
  2. CALCIUM [Concomitant]
     Route: 065
  3. HYDROCHLOROTHIAZIDE [Concomitant]
     Route: 065
  4. FER-IN-SOL [Concomitant]
     Route: 065
  5. SENOKOT [Concomitant]
     Route: 065
  6. IMURAN [Concomitant]
     Route: 048
  7. ATIVAN [Concomitant]
     Route: 065
  8. VITAMIN D [Concomitant]
     Route: 065
  9. REMICADE [Suspect]
     Indication: CROHN'S DISEASE
     Route: 042
     Dates: start: 20080911
  10. ASACOL [Concomitant]
     Route: 065
  11. ASPIRIN [Concomitant]
     Route: 065
  12. PANTOPRAZOLE SODIUM [Concomitant]
     Route: 065
  13. ACTONEL [Concomitant]
     Route: 065
  14. TRANDOLAPRIL [Concomitant]
     Route: 065
  15. CENTRUM NOS [Concomitant]
     Route: 065

REACTIONS (3)
  - ABDOMINAL PAIN UPPER [None]
  - CONSTIPATION [None]
  - INGUINAL HERNIA [None]
